FAERS Safety Report 22283508 (Version 6)
Quarter: 2024Q4

REPORT INFORMATION
  Report Type: Report from Study
  Country: US (occurrence: US)
  Receive Date: 20230504
  Receipt Date: 20241001
  Transmission Date: 20250115
  Serious: Yes (Other)
  Sender: TAKEDA
  Company Number: US-TAKEDA-US202027016

PATIENT
  Age: 72 Year
  Sex: Female

DRUGS (2)
  1. HUMAN IMMUNOGLOBULIN G\HYALURONIDASE RECOMBINANT HUMAN [Suspect]
     Active Substance: HUMAN IMMUNOGLOBULIN G\HYALURONIDASE (HUMAN RECOMBINANT)
     Indication: Immunodeficiency common variable
     Dosage: 40 GRAM, MONTHLY
     Route: 058
  2. HUMAN IMMUNOGLOBULIN G\HYALURONIDASE RECOMBINANT HUMAN [Suspect]
     Active Substance: HUMAN IMMUNOGLOBULIN G\HYALURONIDASE (HUMAN RECOMBINANT)
     Indication: Primary immunodeficiency syndrome

REACTIONS (17)
  - Arrhythmia [Unknown]
  - Anaemia [Unknown]
  - Myalgia [Unknown]
  - Infusion site infection [Unknown]
  - Wound [Recovered/Resolved]
  - Infusion site swelling [Unknown]
  - Infusion site erythema [Unknown]
  - White blood cell count increased [Unknown]
  - Infection [Unknown]
  - COVID-19 [Unknown]
  - Blood pressure decreased [Unknown]
  - Balance disorder [Unknown]
  - Lymphadenopathy [Unknown]
  - Asthma [Unknown]
  - Arthralgia [Unknown]
  - Migraine [Unknown]
  - Red blood cell count decreased [Unknown]

NARRATIVE: CASE EVENT DATE: 20240924
